FAERS Safety Report 8421010 (Version 4)
Quarter: 2013Q1

REPORT INFORMATION
  Report Type: Report from Study
  Country: None (occurrence: DK)
  Receive Date: 20120222
  Receipt Date: 20130129
  Transmission Date: 20140127
  Serious: Yes (Hospitalization)
  Sender: FDA-Public Use
  Company Number: DK-BAXTER-2012BH004668

PATIENT
  Age: 62 Year
  Sex: Female
  Weight: 82.8 kg

DRUGS (14)
  1. CYTOXAN [Suspect]
     Indication: DIFFUSE LARGE B-CELL LYMPHOMA
     Route: 042
     Dates: start: 20111026
  2. CYTOXAN [Suspect]
     Route: 042
     Dates: start: 20111111
  3. DOXORUBICIN [Suspect]
     Indication: DIFFUSE LARGE B-CELL LYMPHOMA
     Route: 042
     Dates: start: 20111026
  4. DOXORUBICIN [Suspect]
     Route: 042
     Dates: start: 20111111
  5. VINCRISTINE SULFATE [Suspect]
     Indication: DIFFUSE LARGE B-CELL LYMPHOMA
     Route: 042
     Dates: start: 20111026
  6. VINCRISTINE SULFATE [Suspect]
     Route: 042
     Dates: start: 20111111
  7. RITUXIMAB [Suspect]
     Indication: DIFFUSE LARGE B-CELL LYMPHOMA
     Route: 042
     Dates: start: 20111026
  8. RITUXIMAB [Suspect]
     Route: 042
     Dates: start: 20111118
  9. PREDNISONE [Suspect]
     Indication: DIFFUSE LARGE B-CELL LYMPHOMA
     Route: 048
     Dates: start: 20111026
  10. PREDNISONE [Suspect]
     Route: 048
     Dates: start: 20111111
  11. FILGRASTIM [Suspect]
     Indication: DIFFUSE LARGE B-CELL LYMPHOMA
     Route: 058
     Dates: start: 20111112
  12. SULFAMETOXAZOL/TRIMETOPRIM [Concomitant]
     Indication: PROPHYLAXIS
     Route: 048
     Dates: start: 20111021, end: 20111104
  13. VALACICLOVIR [Concomitant]
     Indication: PROPHYLAXIS
     Route: 048
     Dates: start: 20111021, end: 20111104
  14. FLUCONAZOLE [Concomitant]
     Indication: INFECTION
     Route: 048
     Dates: start: 20111102, end: 20111104

REACTIONS (1)
  - Pneumonia [Not Recovered/Not Resolved]
